FAERS Safety Report 20512051 (Version 2)
Quarter: 2022Q3

REPORT INFORMATION
  Report Type: Spontaneous
  Country: JP (occurrence: JP)
  Receive Date: 20220224
  Receipt Date: 20220714
  Transmission Date: 20221027
  Serious: No
  Sender: FDA-Public Use
  Company Number: JP-GSKNCCC-Case-01426500_AE-55029

PATIENT

DRUGS (1)
  1. SOTROVIMAB [Suspect]
     Active Substance: SOTROVIMAB
     Dosage: ADMINISTERED HALF THE DOSE
     Dates: start: 20220217

REACTIONS (2)
  - Underdose [Unknown]
  - Therapy cessation [Unknown]
